FAERS Safety Report 21608869 (Version 1)
Quarter: 2022Q4

REPORT INFORMATION
  Report Type: Spontaneous
  Country: US (occurrence: None)
  Receive Date: 20221116
  Receipt Date: 20221116
  Transmission Date: 20230113
  Serious: Yes (unspecified)
  Sender: FDA-Public Use
  Company Number: None

PATIENT
  Age: 41 Year
  Sex: Female
  Weight: 81 kg

DRUGS (1)
  1. OCREVUS [Suspect]
     Active Substance: OCRELIZUMAB
     Indication: Multiple sclerosis
     Dosage: OTHER FREQUENCY : Q6MONTHS;?
     Route: 042
     Dates: start: 20221116, end: 20221116

REACTIONS (5)
  - Throat irritation [None]
  - Pharyngeal erythema [None]
  - Erythema [None]
  - Vulvovaginal erythema [None]
  - Infusion related reaction [None]

NARRATIVE: CASE EVENT DATE: 20221116
